FAERS Safety Report 5398232-1 (Version None)
Quarter: 2007Q3

REPORT INFORMATION
  Report Type: 
  Country: None (occurrence: None)
  Receive Date: 20070726
  Receipt Date: 20070719
  Transmission Date: 20080115
  Serious: Yes (Other)
  Sender: FDA-Public Use
  Company Number: FR-ROXANE LABORATORIES, INC-2007-BP-18030RO

PATIENT
  Age: 24 Year
  Sex: Male

DRUGS (2)
  1. AZATHIOPRINE [Suspect]
     Indication: INFLAMMATORY BOWEL DISEASE
     Route: 048
  2. BUDESONIDE [Concomitant]

REACTIONS (9)
  - C-REACTIVE PROTEIN INCREASED [None]
  - ERYTHEMA NODOSUM [None]
  - HEPATITIS [None]
  - HYPERSENSITIVITY [None]
  - MYALGIA [None]
  - NEUTROPHIL COUNT INCREASED [None]
  - PANCREATITIS [None]
  - PYREXIA [None]
  - RASH PUSTULAR [None]
